FAERS Safety Report 19767426 (Version 1)
Quarter: 2021Q3

REPORT INFORMATION
  Report Type: Spontaneous
  Country: US (occurrence: US)
  Receive Date: 20210830
  Receipt Date: 20210830
  Transmission Date: 20211014
  Serious: No
  Sender: FDA-Public Use
  Company Number: US-ANIPHARMA-2021-US-000543

PATIENT
  Age: 81 Year
  Sex: Female
  Weight: 83.92 kg

DRUGS (7)
  1. VITAMIN D [Concomitant]
     Active Substance: VITAMIN D NOS
     Route: 065
  2. KINOKO PLATINUM AHCC [Concomitant]
     Route: 065
  3. NYSTATIN ORAL SUSPENSION [Suspect]
     Active Substance: NYSTATIN
     Route: 048
     Dates: start: 202008, end: 20200820
  4. VITAMIN C [Concomitant]
     Active Substance: ASCORBIC ACID
     Route: 065
  5. ARED 2 EYE HEALTH [Concomitant]
     Route: 065
  6. ARIMIDEX [Suspect]
     Active Substance: ANASTROZOLE
     Indication: BREAST CANCER
     Dosage: 1 PER DAY
     Route: 048
     Dates: start: 20170704
  7. STROMTIUM [Concomitant]
     Route: 065

REACTIONS (4)
  - Hypersensitivity [Not Recovered/Not Resolved]
  - Urticaria [Not Recovered/Not Resolved]
  - Candida infection [Not Recovered/Not Resolved]
  - Muscle spasms [Recovered/Resolved]

NARRATIVE: CASE EVENT DATE: 202008
